FAERS Safety Report 23152315 (Version 5)
Quarter: 2023Q4

REPORT INFORMATION
  Report Type: Spontaneous
  Country: IT (occurrence: IT)
  Receive Date: 20231107
  Receipt Date: 20231201
  Transmission Date: 20240110
  Serious: Yes (Other)
  Sender: FDA-Public Use
  Company Number: IT-SANDOZ-SDZ2023IT046906

PATIENT
  Age: 55 Year
  Sex: Male

DRUGS (17)
  1. BORTEZOMIB [Suspect]
     Active Substance: BORTEZOMIB
     Indication: Haematological malignancy
     Dosage: 1.3 MILLIGRAM/SQ. METER (EVERY 2 WEEK)
     Route: 065
  2. BORTEZOMIB [Suspect]
     Active Substance: BORTEZOMIB
     Indication: Lichenoid keratosis
     Dosage: 2.6 MILLIGRAM/SQ. METER, EVERY WEEK (FOR TWO WEEKS OVER A 35-DAYS TREATMENT COURSE)
     Route: 065
  3. DEXAMETHASONE [Suspect]
     Active Substance: DEXAMETHASONE
     Indication: Uraemic pruritus
     Dosage: 40 MILLIGRAM, EVERY WEEK
     Route: 065
  4. DEXAMETHASONE [Suspect]
     Active Substance: DEXAMETHASONE
     Indication: Lichenoid keratosis
  5. DUPILUMAB [Suspect]
     Active Substance: DUPILUMAB
     Indication: Lichenoid keratosis
     Dosage: 600 MILLIGRAM
     Route: 058
  6. DUPILUMAB [Suspect]
     Active Substance: DUPILUMAB
     Indication: Pruritus
     Dosage: 300 MILLIGRAM (EVERY 2 WEEK)
     Route: 065
  7. NEBIVOLOL [Concomitant]
     Active Substance: NEBIVOLOL
     Indication: Product used for unknown indication
     Dosage: UNK
     Route: 065
  8. OLMESARTAN MEDOXOMIL [Concomitant]
     Active Substance: OLMESARTAN MEDOXOMIL
     Indication: Product used for unknown indication
     Dosage: UNK
     Route: 065
  9. EZETIMIBE\SIMVASTATIN [Concomitant]
     Active Substance: EZETIMIBE\SIMVASTATIN
     Indication: Product used for unknown indication
     Dosage: UNK
     Route: 065
  10. AMLODIPINE [Concomitant]
     Active Substance: AMLODIPINE BESYLATE
     Indication: Product used for unknown indication
     Dosage: UNK
     Route: 065
  11. FUROSEMIDE [Concomitant]
     Active Substance: FUROSEMIDE
     Indication: Product used for unknown indication
     Dosage: UNK
     Route: 065
  12. FEBUXOSTAT [Concomitant]
     Active Substance: FEBUXOSTAT
     Indication: Product used for unknown indication
     Dosage: UNK
     Route: 065
  13. WARFARIN SODIUM [Concomitant]
     Active Substance: WARFARIN SODIUM
     Indication: Product used for unknown indication
     Dosage: UNK
     Route: 065
  14. FORMOTEROL FUMARATE [Concomitant]
     Active Substance: FORMOTEROL FUMARATE
     Indication: Atopy
     Dosage: UNK
     Route: 065
  15. FORMOTEROL FUMARATE [Concomitant]
     Active Substance: FORMOTEROL FUMARATE
     Indication: Asthma
  16. FLUTICASONE PROPIONATE [Concomitant]
     Active Substance: FLUTICASONE PROPIONATE
     Indication: Atopy
     Dosage: UNK
     Route: 065
  17. FLUTICASONE PROPIONATE [Concomitant]
     Active Substance: FLUTICASONE PROPIONATE
     Indication: Asthma

REACTIONS (5)
  - Bladder sphincter atony [Unknown]
  - Hypotonia [Unknown]
  - Paraesthesia [Unknown]
  - Enuresis [Unknown]
  - Off label use [Unknown]
